FAERS Safety Report 4446411-X (Version None)
Quarter: 2004Q3

REPORT INFORMATION
  Report Type: 
  Country: None (occurrence: None)
  Receive Date: 20040907
  Receipt Date: 20040825
  Transmission Date: 20050211
  Serious: Yes (Other)
  Sender: FDA-Public Use
  Company Number: 2004059517

PATIENT
  Age: 37 Year
  Sex: Male
  Weight: 86.1834 kg

DRUGS (4)
  1. NARDIL [Suspect]
     Indication: DEPRESSION
     Dosage: 75 MG (15 MG, 5 IN 1 D), ORAL
     Route: 048
     Dates: start: 20040601
  2. LITHIUM CARBONATE [Concomitant]
  3. ZOLPIDEM TARTRATE [Concomitant]
  4. DIAZEPAM [Concomitant]

REACTIONS (24)
  - ASCITES [None]
  - ASTHENIA [None]
  - CONSTIPATION [None]
  - DIZZINESS [None]
  - DRY MOUTH [None]
  - DYSPNOEA [None]
  - FATIGUE [None]
  - GASTROINTESTINAL DISORDER [None]
  - HEADACHE [None]
  - HEPATIC ENZYME INCREASED [None]
  - HYPERHIDROSIS [None]
  - INSOMNIA [None]
  - JAUNDICE [None]
  - MALAISE [None]
  - MYOCLONUS [None]
  - OEDEMA PERIPHERAL [None]
  - PARAESTHESIA [None]
  - RASH [None]
  - SLEEP DISORDER [None]
  - TACHYCARDIA [None]
  - URINARY RETENTION [None]
  - URINE OUTPUT DECREASED [None]
  - VISION BLURRED [None]
  - WEIGHT INCREASED [None]
